FAERS Safety Report 4600201-3 (Version None)
Quarter: 2005Q1

REPORT INFORMATION
  Report Type: 
  Country: None (occurrence: None)
  Receive Date: 20050303
  Receipt Date: 20050215
  Transmission Date: 20050727
  Serious: Yes (Hospitalization)
  Sender: FDA-Public Use
  Company Number: JP_041105210

PATIENT
  Age: 70 Year
  Sex: Male

DRUGS (1)
  1. GEMZAR [Suspect]
     Indication: PANCREATIC CARCINOMA
     Dates: start: 20040201, end: 20040927

REACTIONS (2)
  - HAEMOLYTIC URAEMIC SYNDROME [None]
  - PLEURAL EFFUSION [None]
